FAERS Safety Report 19950300 (Version 1)
Quarter: 2021Q4

REPORT INFORMATION
  Report Type: Spontaneous
  Country: US (occurrence: US)
  Receive Date: 20211011
  Receipt Date: 20211011
  Transmission Date: 20220303
  Serious: Yes (Hospitalization)
  Sender: FDA-Public Use
  Company Number: None

PATIENT
  Age: 59 Year
  Sex: Female

DRUGS (31)
  1. AVONEX PEN [Suspect]
     Active Substance: INTERFERON BETA-1A
     Indication: Multiple sclerosis
     Dosage: PEN
     Route: 030
     Dates: start: 20200731
  2. ATIVAN [Concomitant]
     Active Substance: LORAZEPAM
  3. B COMPLEX/FO [Concomitant]
  4. VITAMIN B12 [Concomitant]
     Active Substance: CYANOCOBALAMIN
  5. BISCAODYL EC [Concomitant]
  6. CRANBERRY [Concomitant]
     Active Substance: CRANBERRY
  7. DOCUSATE SOD [Concomitant]
  8. FENOFIBRATE [Concomitant]
     Active Substance: FENOFIBRATE
  9. FENTANYLDIS [Concomitant]
  10. FOLIC ACID [Concomitant]
     Active Substance: FOLIC ACID
  11. GABAPENTIN [Concomitant]
     Active Substance: GABAPENTIN
  12. GLUCAGON KIT [Concomitant]
  13. LACTULOSE [Concomitant]
     Active Substance: LACTULOSE
  14. LIPITOR [Concomitant]
     Active Substance: ATORVASTATIN CALCIUM
  15. LORATADINE [Concomitant]
     Active Substance: LORATADINE
  16. METFORMIN [Concomitant]
     Active Substance: METFORMIN HYDROCHLORIDE
  17. NABUMETONE [Concomitant]
     Active Substance: NABUMETONE
  18. OMEGA-3 ACIDS [Concomitant]
     Active Substance: OMEGA-3 FATTY ACIDS
  19. PANTOPRAZOLE [Concomitant]
     Active Substance: PANTOPRAZOLE
  20. PEG 3350 [Concomitant]
     Active Substance: POLYETHYLENE GLYCOL 3350
  21. PERCOCET [Concomitant]
     Active Substance: ACETAMINOPHEN\OXYCODONE HYDROCHLORIDE
  22. PROAIR RESPI [Concomitant]
  23. ROBITUSSIN DM [Concomitant]
     Active Substance: DEXTROMETHORPHAN HYDROBROMIDE\GUAIFENESIN
  24. SENNA-S [Concomitant]
     Active Substance: DOCUSATE SODIUM\SENNOSIDES
  25. SIMETHICONE (DIMETHICONE) [Concomitant]
     Active Substance: DIMETHICONE
  26. SYNTHROID [Concomitant]
     Active Substance: LEVOTHYROXINE SODIUM
  27. TIZANIDINE [Concomitant]
     Active Substance: TIZANIDINE
  28. TYLENOL [Concomitant]
     Active Substance: ACETAMINOPHEN
  29. VENTOLIN HFA [Concomitant]
     Active Substance: ALBUTEROL SULFATE
  30. VITAMIN C [Concomitant]
     Active Substance: ASCORBIC ACID
  31. VOLTAREN [Concomitant]
     Active Substance: DICLOFENAC SODIUM

REACTIONS (1)
  - Urinary tract infection [None]

NARRATIVE: CASE EVENT DATE: 20211008
